FAERS Safety Report 4416609-5 (Version None)
Quarter: 2004Q3

REPORT INFORMATION
  Report Type: 
  Country: None (occurrence: None)
  Receive Date: 20040802
  Receipt Date: 20040721
  Transmission Date: 20050211
  Serious: Yes (Hospitalization)
  Sender: FDA-Public Use
  Company Number: 200410372BFR

PATIENT
  Sex: Male

DRUGS (12)
  1. CIPROFLOXACIN [Suspect]
     Indication: SEPSIS
     Dosage: 200 MG, TOTAL DAILY, INTRAVENOUS
     Route: 042
     Dates: start: 20040603, end: 20040604
  2. OXACILLIN [Suspect]
     Indication: SEPSIS
     Dosage: 2 G, TOTAL DAILY, INTRAVENOUS
     Route: 042
     Dates: start: 20040603, end: 20040604
  3. ISOPTINE LP [Concomitant]
  4. OMEPRAZOLE [Concomitant]
  5. INSULATARD NPH HUMAN [Concomitant]
  6. CIBACENE [Concomitant]
  7. PREVISCAN [Concomitant]
  8. LEVOTHYROXINE SODIUM [Concomitant]
  9. OXYBUTYN [Concomitant]
  10. PRAVASTATIN [Concomitant]
  11. ROCEPHIN [Concomitant]
  12. FLAGYL [Concomitant]

REACTIONS (4)
  - CONFUSIONAL STATE [None]
  - EPILEPSY [None]
  - HYPONATRAEMIA [None]
  - POSTICTAL STATE [None]
